FAERS Safety Report 8401823-4 (Version None)
Quarter: 2012Q2

REPORT INFORMATION
  Report Type: 
  Country: None (occurrence: None)
  Receive Date: 20120529
  Receipt Date: 20081002
  Transmission Date: 20120825
  Serious: Yes (Hospitalization)
  Sender: FDA-Public Use
  Company Number: 004597

PATIENT
  Age: 73 Year
  Sex: Male

DRUGS (8)
  1. NEUOMIL (MAPROTILINE HYDROCHLORIDE) [Concomitant]
  2. AROPHALM (ETOZOLAM) [Concomitant]
  3. PAXIL [Concomitant]
  4. ZOLPIDEM TARTRATE [Concomitant]
  5. MEDEPOLIN (ALPRAZOLAM) [Concomitant]
  6. PLETAL [Suspect]
     Indication: PERIPHERAL ARTERIAL OCCLUSIVE DISEASE
     Dosage: 50 MG, QD, ORAL 50 MG, BID, ORAL 100 MG, BID, ORAL
     Route: 048
     Dates: start: 20080908, end: 20080911
  7. PLETAL [Suspect]
     Indication: PERIPHERAL ARTERIAL OCCLUSIVE DISEASE
     Dosage: 50 MG, QD, ORAL 50 MG, BID, ORAL 100 MG, BID, ORAL
     Route: 048
     Dates: start: 20080811, end: 20080907
  8. PLETAL [Suspect]
     Indication: PERIPHERAL ARTERIAL OCCLUSIVE DISEASE
     Dosage: 50 MG, QD, ORAL 50 MG, BID, ORAL 100 MG, BID, ORAL
     Route: 048
     Dates: start: 20080730, end: 20080810

REACTIONS (4)
  - LOSS OF CONSCIOUSNESS [None]
  - ACOUSTIC NEUROMA [None]
  - CONDITION AGGRAVATED [None]
  - DIZZINESS [None]
